FAERS Safety Report 9048735 (Version 1)
Quarter: 2013Q1

REPORT INFORMATION
  Report Type: Spontaneous
  Country: US (occurrence: None)
  Receive Date: 20130130
  Receipt Date: 20130130
  Transmission Date: 20140127
  Serious: Yes (Hospitalization)
  Sender: FDA-Public Use
  Company Number: None

PATIENT
  Age: 86 Year
  Sex: Male
  Weight: 67.6 kg

DRUGS (10)
  1. MELOXICAM [Suspect]
     Indication: OSTEOARTHRITIS
     Dosage: RECENT
     Route: 048
  2. PLAVIX [Suspect]
     Indication: CORONARY ARTERY DISEASE
     Dosage: CHRONIC
     Route: 048
  3. ASPIRIN [Suspect]
     Indication: CORONARY ARTERY DISEASE
     Dosage: CHRONIC
     Route: 048
  4. TOPROL XL [Concomitant]
  5. GINKGO BILOBA [Concomitant]
  6. LUTEIN [Concomitant]
  7. GLUCOSAMINE [Concomitant]
  8. MAG OX [Concomitant]
  9. TAMSULOSIN [Concomitant]
  10. COENZYME Q10 [Concomitant]

REACTIONS (3)
  - Haematochezia [None]
  - Lower gastrointestinal haemorrhage [None]
  - Diverticulum intestinal [None]
